FAERS Safety Report 10606819 (Version 3)
Quarter: 2015Q3

REPORT INFORMATION
  Report Type: Spontaneous
  Country: US (occurrence: US)
  Receive Date: 20141125
  Receipt Date: 20150702
  Transmission Date: 20151125
  Serious: Yes (Hospitalization)
  Sender: FDA-Public Use
  Company Number: US-BAYER-2014-170918

PATIENT
  Age: 27 Year
  Sex: Female
  Weight: 140.59 kg

DRUGS (2)
  1. OCELLA [Suspect]
     Active Substance: DROSPIRENONE\ETHINYL ESTRADIOL
     Dosage: UNK
     Dates: start: 20051004, end: 20101218
  2. YASMIN [Suspect]
     Active Substance: DROSPIRENONE\ETHINYL ESTRADIOL
     Dosage: UNK
     Dates: start: 20051004, end: 20101218

REACTIONS (6)
  - Dysarthria [None]
  - Transient ischaemic attack [None]
  - Injury [None]
  - Pain [None]
  - Gait disturbance [None]
  - Amnesia [None]

NARRATIVE: CASE EVENT DATE: 20101220
